FAERS Safety Report 6155978-5 (Version None)
Quarter: 2009Q2

REPORT INFORMATION
  Report Type: 
  Country: None (occurrence: None)
  Receive Date: 20090415
  Receipt Date: 20090410
  Transmission Date: 20091009
  Serious: Yes (Other)
  Sender: FDA-Public Use
  Company Number: US-ASTRAZENECA-2008UW27377

PATIENT
  Age: 862 Month
  Sex: Male

DRUGS (1)
  1. SEROQUEL [Suspect]
     Indication: AFFECTIVE DISORDER
     Route: 048
     Dates: start: 20080201, end: 20080501

REACTIONS (4)
  - DEAFNESS [None]
  - DIABETES MELLITUS [None]
  - LEG AMPUTATION [None]
  - VISUAL IMPAIRMENT [None]
